FAERS Safety Report 7817108-0 (Version None)
Quarter: 2011Q4

REPORT INFORMATION
  Report Type: 
  Country: None (occurrence: None)
  Receive Date: 20111017
  Receipt Date: 20111004
  Transmission Date: 20120403
  Serious: Yes (Other)
  Sender: FDA-Public Use
  Company Number: PHHY2011MX88094

PATIENT
  Sex: Male

DRUGS (5)
  1. METFORMIN HYDROCHLORIDE [Concomitant]
     Dosage: UNK UKN, UNK
  2. KETOSTERIL [Concomitant]
     Dosage: UNK UKN, UNK
  3. PIOGLITAZONE [Concomitant]
     Dosage: UNK UKN, UNK
  4. DIOVAN HCT [Suspect]
     Dosage: 1 DF (VALS 320 MG, HYDR 12.5 MG), UNK
     Dates: start: 20071001
  5. DIOVAN HCT [Suspect]
     Indication: HYPERTENSION
     Dosage: 1 DF (VALS 160 MG, HYDR 25 MG), UNK

REACTIONS (7)
  - RENAL DISORDER [None]
  - PROTEINURIA [None]
  - YELLOW SKIN [None]
  - DIZZINESS [None]
  - SOMNOLENCE [None]
  - BLOOD PRESSURE INADEQUATELY CONTROLLED [None]
  - FEELING DRUNK [None]
